FAERS Safety Report 24908309 (Version 1)
Quarter: 2025Q1

REPORT INFORMATION
  Report Type: Spontaneous
  Country: US (occurrence: US)
  Receive Date: 20250131
  Receipt Date: 20250131
  Transmission Date: 20250409
  Serious: No
  Sender: NOVARTIS
  Company Number: US-002147023-NVSC2025US011371

PATIENT
  Sex: Male

DRUGS (2)
  1. COSENTYX [Suspect]
     Active Substance: SECUKINUMAB
     Indication: Product used for unknown indication
     Dosage: 150 MILLIGRAM PER MILLILITRE, QW (ONCE WEEKLY FOR 5 WEEKS WEEKS 0, 1, 2, 3, AND 4)
     Route: 065
  2. COSENTYX [Suspect]
     Active Substance: SECUKINUMAB
     Dosage: 150 MILLIGRAM PER MILLILITRE, Q4W
     Route: 065

REACTIONS (4)
  - Accidental exposure to product [Unknown]
  - Device deployment issue [Unknown]
  - Device leakage [Unknown]
  - Exposure via skin contact [Unknown]
